FAERS Safety Report 15714271 (Version 3)
Quarter: 2021Q2

REPORT INFORMATION
  Report Type: Report from Study
  Country: FR (occurrence: FR)
  Receive Date: 20181212
  Receipt Date: 20210630
  Transmission Date: 20210716
  Serious: Yes (Hospitalization, Other)
  Sender: FDA-Public Use
  Company Number: FR-SHIRE-FR201847680

PATIENT
  Age: 46 Year
  Sex: Male
  Weight: 66 kg

DRUGS (12)
  1. CHOLURSO [Concomitant]
     Active Substance: URSODIOL
     Indication: LIVER DISORDER
     Dosage: 250 MILLIGRAM, QD
     Route: 048
     Dates: start: 20190109
  2. EUPANTOL [Concomitant]
     Active Substance: PANTOPRAZOLE SODIUM
     Indication: ABDOMINAL PAIN
     Dosage: 40 MILLIGRAM, QD
     Route: 042
     Dates: start: 20190109
  3. INNOHEP [Concomitant]
     Active Substance: TINZAPARIN SODIUM
     Indication: THROMBOSIS
     Dosage: 8000 INTERNATIONAL UNIT, QD
     Route: 058
     Dates: start: 20190109
  4. TEDUGLUTIDE [Suspect]
     Active Substance: TEDUGLUTIDE
     Indication: SHORT-BOWEL SYNDROME
     Dosage: 3.3 MG, 1X/DAY:QD
     Route: 065
     Dates: start: 20160324, end: 20181205
  5. SODIUM BICARBONATE. [Concomitant]
     Active Substance: SODIUM BICARBONATE
     Indication: SUPPLEMENTATION THERAPY
     Dosage: UNK
     Route: 065
  6. TEDUGLUTIDE [Suspect]
     Active Substance: TEDUGLUTIDE
     Indication: SHORT-BOWEL SYNDROME
     Dosage: 3.3 MG, 1X/DAY:QD
     Route: 065
     Dates: start: 20160324, end: 20181205
  7. TEDUGLUTIDE [Suspect]
     Active Substance: TEDUGLUTIDE
     Indication: SHORT-BOWEL SYNDROME
     Dosage: 3.3 MG, 1X/DAY:QD
     Route: 065
     Dates: start: 20160324, end: 20181205
  8. RUBOZINC [Concomitant]
     Active Substance: ZINC GLUCONATE
     Indication: SUPPLEMENTATION THERAPY
     Dosage: UNK
     Route: 065
  9. TEDUGLUTIDE [Suspect]
     Active Substance: TEDUGLUTIDE
     Indication: SHORT-BOWEL SYNDROME
     Dosage: 3.3 MG, 1X/DAY:QD
     Route: 065
     Dates: start: 20160324, end: 20181205
  10. COPPER [Concomitant]
     Active Substance: COPPER
     Indication: SUPPLEMENTATION THERAPY
     Dosage: UNK
     Route: 065
  11. SELENIUM [Concomitant]
     Active Substance: SELENIUM
     Indication: SUPPLEMENTATION THERAPY
     Dosage: UNK
     Route: 065
  12. TIAPRIDAL [Concomitant]
     Active Substance: TIAPRIDE HYDROCHLORIDE
     Indication: ANXIETY
     Dosage: 100 MILLIGRAM, THROUGHOUT THE DAY
     Route: 042
     Dates: start: 20190109

REACTIONS (4)
  - Malnutrition [Not Recovered/Not Resolved]
  - Colitis [Not Recovered/Not Resolved]
  - Device related infection [Not Recovered/Not Resolved]
  - Respiratory distress [Not Recovered/Not Resolved]

NARRATIVE: CASE EVENT DATE: 201811
